FAERS Safety Report 4836468-6 (Version None)
Quarter: 2005Q4

REPORT INFORMATION
  Report Type: 
  Country: None (occurrence: None)
  Receive Date: 20051123
  Receipt Date: 20051115
  Transmission Date: 20060501
  Serious: Yes (Other)
  Sender: FDA-Public Use
  Company Number: PHEH2005US12568

PATIENT
  Age: 59 Year
  Sex: Female

DRUGS (1)
  1. AREDIA [Suspect]
     Dosage: 90 MG, QMO
     Dates: end: 20050801

REACTIONS (5)
  - BONE DENSITY INCREASED [None]
  - BONE SWELLING [None]
  - EXOSTOSIS [None]
  - OSTEOPOROSIS [None]
  - PAIN IN JAW [None]
